FAERS Safety Report 25839822 (Version 1)
Quarter: 2025Q3

REPORT INFORMATION
  Report Type: Spontaneous
  Country: GB (occurrence: GB)
  Receive Date: 20250924
  Receipt Date: 20250924
  Transmission Date: 20251021
  Serious: Yes (Hospitalization, Disabling, Other)
  Sender: USV PRIVATE LIMITED
  Company Number: GB-USV-003712

PATIENT
  Age: 9 Year
  Sex: Female

DRUGS (1)
  1. ZOLEDRONIC ACID [Suspect]
     Active Substance: ZOLEDRONIC ACID
     Indication: Osteoporosis
     Dosage: UNK, Q6M
     Dates: start: 202112

REACTIONS (4)
  - Atypical femur fracture [Recovered/Resolved]
  - Femur fracture [Recovered/Resolved]
  - Limb deformity [Recovered/Resolved]
  - Product use issue [Unknown]

NARRATIVE: CASE EVENT DATE: 20240501
